FAERS Safety Report 4897223-4 (Version None)
Quarter: 2006Q1

REPORT INFORMATION
  Report Type: 
  Country: None (occurrence: None)
  Receive Date: 20060127
  Receipt Date: 20060111
  Transmission Date: 20060701
  Serious: Yes (Other)
  Sender: FDA-Public Use
  Company Number: DSA_26610_2005

PATIENT
  Age: 66 Year
  Sex: Male

DRUGS (10)
  1. CARDIZEM [Suspect]
     Indication: CARDIAC FAILURE CONGESTIVE
     Dosage: 120 MG Q DAY PO
     Route: 048
  2. ISORDIL [Suspect]
     Indication: CARDIAC FAILURE CONGESTIVE
     Dosage: 60 MG Q DAY SL
  3. LASIX [Suspect]
     Indication: CARDIAC FAILURE CONGESTIVE
     Dosage: 240 MG Q DAY PO
     Route: 048
  4. CORDARONE [Suspect]
     Dosage: 50 MG Q DAY PO
     Route: 048
     Dates: start: 19980101, end: 19900425
  5. WARFARIN SODIUM [Suspect]
     Dosage: 2.5 MG Q DAY PO
     Route: 048
  6. CAPOTEN [Suspect]
     Dosage: 75 MG Q DAY PO
     Route: 048
     Dates: start: 19890401, end: 19900428
  7. ZYLOPRIM [Suspect]
     Indication: GOUT
     Dosage: 300 MG Q DAY PO
     Route: 048
  8. LANOXIN [Suspect]
     Indication: CARDIAC FAILURE CONGESTIVE
     Dosage: 125 MCG Q DAY PO
     Route: 048
  9. NITRODERM [Suspect]
     Indication: CARDIAC FAILURE CONGESTIVE
     Dosage: 50 MG Q DAY TP
     Route: 062
  10. SLOW-K [Suspect]
     Indication: CARDIAC FAILURE CONGESTIVE
     Dosage: 240 MG Q DAY PO
     Route: 048

REACTIONS (3)
  - DRUG INEFFECTIVE [None]
  - HYPERTHYROIDISM [None]
  - SKIN DISCOLOURATION [None]
